FAERS Safety Report 25193413 (Version 7)
Quarter: 2025Q4

REPORT INFORMATION
  Report Type: Spontaneous
  Country: JP (occurrence: JP)
  Receive Date: 20250414
  Receipt Date: 20251210
  Transmission Date: 20260118
  Serious: Yes (Hospitalization, Other)
  Sender: ALEXION PHARMACEUTICALS
  Company Number: JP-ASTRAZENECA-250028975_013120_P_1

PATIENT
  Age: 71 Year
  Sex: Female
  Weight: 37.6 kg

DRUGS (2)
  1. IMFINZI [Suspect]
     Active Substance: DURVALUMAB
     Indication: Endometrial cancer
     Dosage: 1120 MILLIGRAM, Q3W
     Dates: start: 20230109
  2. UNSPECIFIED INGREDIENT [Concomitant]
     Active Substance: UNSPECIFIED INGREDIENT
     Indication: Endometrial cancer
     Dosage: UNK
     Route: 065

REACTIONS (5)
  - Immune-mediated myositis [Recovered/Resolved]
  - Ophthalmoplegia [Recovered/Resolved]
  - Immune-mediated myocarditis [Recovered/Resolved]
  - Hydronephrosis [Recovered/Resolved]
  - Deep vein thrombosis [Unknown]

NARRATIVE: CASE EVENT DATE: 20240617
